FAERS Safety Report 25613911 (Version 2)
Quarter: 2025Q3

REPORT INFORMATION
  Report Type: Spontaneous
  Country: EU (occurrence: EU)
  Receive Date: 20250728
  Receipt Date: 20250814
  Transmission Date: 20251020
  Serious: Yes (Other)
  Sender: MYLAN
  Company Number: EU-EMB-M202404089-1

PATIENT
  Sex: Male
  Weight: 2.45 kg

DRUGS (56)
  1. METOPROLOL [Suspect]
     Active Substance: METOPROLOL
     Indication: Hypertension
     Dosage: 150 MILLIGRAM, QD (50 MG IN THE MORNING, 100 MG AT NIGHT)
     Dates: start: 202401, end: 202410
  2. METOPROLOL [Suspect]
     Active Substance: METOPROLOL
     Dosage: 150 MILLIGRAM, QD (50 MG IN THE MORNING, 100 MG AT NIGHT)
     Dates: start: 202401, end: 202410
  3. METOPROLOL [Suspect]
     Active Substance: METOPROLOL
     Dosage: 150 MILLIGRAM, QD (50 MG IN THE MORNING, 100 MG AT NIGHT)
     Route: 064
     Dates: start: 202401, end: 202410
  4. METOPROLOL [Suspect]
     Active Substance: METOPROLOL
     Dosage: 150 MILLIGRAM, QD (50 MG IN THE MORNING, 100 MG AT NIGHT)
     Route: 064
     Dates: start: 202401, end: 202410
  5. METOPROLOL [Suspect]
     Active Substance: METOPROLOL
     Dosage: 150 MILLIGRAM, QD (50 MG IN THE MORNING, 100 MG AT NIGHT)
     Dates: start: 202401, end: 202410
  6. METOPROLOL [Suspect]
     Active Substance: METOPROLOL
     Dosage: 150 MILLIGRAM, QD (50 MG IN THE MORNING, 100 MG AT NIGHT)
     Dates: start: 202401, end: 202410
  7. METOPROLOL [Suspect]
     Active Substance: METOPROLOL
     Dosage: 150 MILLIGRAM, QD (50 MG IN THE MORNING, 100 MG AT NIGHT)
     Route: 064
     Dates: start: 202401, end: 202410
  8. METOPROLOL [Suspect]
     Active Substance: METOPROLOL
     Dosage: 150 MILLIGRAM, QD (50 MG IN THE MORNING, 100 MG AT NIGHT)
     Route: 064
     Dates: start: 202401, end: 202410
  9. METHYLDOPA [Suspect]
     Active Substance: METHYLDOPA
     Indication: Hypertension
     Dosage: 250 MILLIGRAM, TID (0.33 DAY)
     Dates: start: 202401, end: 202410
  10. METHYLDOPA [Suspect]
     Active Substance: METHYLDOPA
     Dosage: 250 MILLIGRAM, TID (0.33 DAY)
     Dates: start: 202401, end: 202410
  11. METHYLDOPA [Suspect]
     Active Substance: METHYLDOPA
     Dosage: 250 MILLIGRAM, TID (0.33 DAY)
     Route: 064
     Dates: start: 202401, end: 202410
  12. METHYLDOPA [Suspect]
     Active Substance: METHYLDOPA
     Dosage: 250 MILLIGRAM, TID (0.33 DAY)
     Route: 064
     Dates: start: 202401, end: 202410
  13. METHYLDOPA [Suspect]
     Active Substance: METHYLDOPA
     Dosage: 250 MILLIGRAM, TID (0.33 DAY)
     Dates: start: 202401, end: 202410
  14. METHYLDOPA [Suspect]
     Active Substance: METHYLDOPA
     Dosage: 250 MILLIGRAM, TID (0.33 DAY)
     Dates: start: 202401, end: 202410
  15. METHYLDOPA [Suspect]
     Active Substance: METHYLDOPA
     Dosage: 250 MILLIGRAM, TID (0.33 DAY)
     Route: 064
     Dates: start: 202401, end: 202410
  16. METHYLDOPA [Suspect]
     Active Substance: METHYLDOPA
     Dosage: 250 MILLIGRAM, TID (0.33 DAY)
     Route: 064
     Dates: start: 202401, end: 202410
  17. PROMETHAZINE [Concomitant]
     Active Substance: PROMETHAZINE HYDROCHLORIDE
     Indication: Restlessness
     Dates: start: 202404, end: 202410
  18. PROMETHAZINE [Concomitant]
     Active Substance: PROMETHAZINE HYDROCHLORIDE
     Indication: Post-traumatic stress disorder
     Dates: start: 202404, end: 202410
  19. PROMETHAZINE [Concomitant]
     Active Substance: PROMETHAZINE HYDROCHLORIDE
     Indication: Social anxiety disorder
     Route: 064
     Dates: start: 202404, end: 202410
  20. PROMETHAZINE [Concomitant]
     Active Substance: PROMETHAZINE HYDROCHLORIDE
     Indication: Persistent depressive disorder
     Route: 064
     Dates: start: 202404, end: 202410
  21. PROMETHAZINE [Concomitant]
     Active Substance: PROMETHAZINE HYDROCHLORIDE
     Indication: Depression
     Dates: start: 202404, end: 202410
  22. PROMETHAZINE [Concomitant]
     Active Substance: PROMETHAZINE HYDROCHLORIDE
     Dates: start: 202404, end: 202410
  23. PROMETHAZINE [Concomitant]
     Active Substance: PROMETHAZINE HYDROCHLORIDE
     Route: 064
     Dates: start: 202404, end: 202410
  24. PROMETHAZINE [Concomitant]
     Active Substance: PROMETHAZINE HYDROCHLORIDE
     Route: 064
     Dates: start: 202404, end: 202410
  25. LORAZEPAM [Concomitant]
     Active Substance: LORAZEPAM
     Indication: Restlessness
     Dosage: 1.25 MG,QD(2 TIMES UNTIL GW 13, CHANGED TO PROMETHAZINE FOR ANXIETY,TENSION IN COMPLEX PSYCHIATRIC
     Dates: start: 202401, end: 202404
  26. LORAZEPAM [Concomitant]
     Active Substance: LORAZEPAM
     Indication: Post-traumatic stress disorder
     Dosage: 1.25 MG,QD(2 TIMES UNTIL GW 13, CHANGED TO PROMETHAZINE FOR ANXIETY,TENSION IN COMPLEX PSYCHIATRIC
     Dates: start: 202401, end: 202404
  27. LORAZEPAM [Concomitant]
     Active Substance: LORAZEPAM
     Indication: Social anxiety disorder
     Dosage: 1.25 MG,QD(2 TIMES UNTIL GW 13, CHANGED TO PROMETHAZINE FOR ANXIETY,TENSION IN COMPLEX PSYCHIATRIC
     Route: 064
     Dates: start: 202401, end: 202404
  28. LORAZEPAM [Concomitant]
     Active Substance: LORAZEPAM
     Indication: Persistent depressive disorder
     Dosage: 1.25 MG,QD(2 TIMES UNTIL GW 13, CHANGED TO PROMETHAZINE FOR ANXIETY,TENSION IN COMPLEX PSYCHIATRIC
     Route: 064
     Dates: start: 202401, end: 202404
  29. LORAZEPAM [Concomitant]
     Active Substance: LORAZEPAM
     Indication: Depression
     Dosage: 1.25 MG,QD(2 TIMES UNTIL GW 13, CHANGED TO PROMETHAZINE FOR ANXIETY,TENSION IN COMPLEX PSYCHIATRIC
     Dates: start: 202401, end: 202404
  30. LORAZEPAM [Concomitant]
     Active Substance: LORAZEPAM
     Dosage: 1.25 MG,QD(2 TIMES UNTIL GW 13, CHANGED TO PROMETHAZINE FOR ANXIETY,TENSION IN COMPLEX PSYCHIATRIC
     Dates: start: 202401, end: 202404
  31. LORAZEPAM [Concomitant]
     Active Substance: LORAZEPAM
     Dosage: 1.25 MG,QD(2 TIMES UNTIL GW 13, CHANGED TO PROMETHAZINE FOR ANXIETY,TENSION IN COMPLEX PSYCHIATRIC
     Route: 064
     Dates: start: 202401, end: 202404
  32. LORAZEPAM [Concomitant]
     Active Substance: LORAZEPAM
     Dosage: 1.25 MG,QD(2 TIMES UNTIL GW 13, CHANGED TO PROMETHAZINE FOR ANXIETY,TENSION IN COMPLEX PSYCHIATRIC
     Route: 064
     Dates: start: 202401, end: 202404
  33. ASPIRIN [Concomitant]
     Active Substance: ASPIRIN
     Indication: Prophylaxis
     Dosage: 150 MILLIGRAM, QD
     Dates: start: 202404, end: 202409
  34. ASPIRIN [Concomitant]
     Active Substance: ASPIRIN
     Dosage: 150 MILLIGRAM, QD
     Dates: start: 202404, end: 202409
  35. ASPIRIN [Concomitant]
     Active Substance: ASPIRIN
     Dosage: 150 MILLIGRAM, QD
     Route: 064
     Dates: start: 202404, end: 202409
  36. ASPIRIN [Concomitant]
     Active Substance: ASPIRIN
     Dosage: 150 MILLIGRAM, QD
     Route: 064
     Dates: start: 202404, end: 202409
  37. ASPIRIN [Concomitant]
     Active Substance: ASPIRIN
     Dosage: 150 MILLIGRAM, QD
     Dates: start: 202404, end: 202409
  38. ASPIRIN [Concomitant]
     Active Substance: ASPIRIN
     Dosage: 150 MILLIGRAM, QD
     Dates: start: 202404, end: 202409
  39. ASPIRIN [Concomitant]
     Active Substance: ASPIRIN
     Dosage: 150 MILLIGRAM, QD
     Route: 064
     Dates: start: 202404, end: 202409
  40. ASPIRIN [Concomitant]
     Active Substance: ASPIRIN
     Dosage: 150 MILLIGRAM, QD
     Route: 064
     Dates: start: 202404, end: 202409
  41. ACETAMINOPHEN [Concomitant]
     Active Substance: ACETAMINOPHEN
     Indication: Pain
  42. ACETAMINOPHEN [Concomitant]
     Active Substance: ACETAMINOPHEN
  43. ACETAMINOPHEN [Concomitant]
     Active Substance: ACETAMINOPHEN
     Route: 064
  44. ACETAMINOPHEN [Concomitant]
     Active Substance: ACETAMINOPHEN
     Route: 064
  45. ACETAMINOPHEN [Concomitant]
     Active Substance: ACETAMINOPHEN
  46. ACETAMINOPHEN [Concomitant]
     Active Substance: ACETAMINOPHEN
  47. ACETAMINOPHEN [Concomitant]
     Active Substance: ACETAMINOPHEN
     Route: 064
  48. ACETAMINOPHEN [Concomitant]
     Active Substance: ACETAMINOPHEN
     Route: 064
  49. BOOSTRIX [Concomitant]
     Active Substance: TETANUS TOXOID, REDUCED DIPHTHERIA TOXOID AND ACELLULAR PERTUSSIS VACCINE ADSORBED, TDAP
     Indication: Immunisation
     Dosage: UNK UNK, QD
     Dates: start: 202408, end: 202408
  50. BOOSTRIX [Concomitant]
     Active Substance: TETANUS TOXOID, REDUCED DIPHTHERIA TOXOID AND ACELLULAR PERTUSSIS VACCINE ADSORBED, TDAP
     Dosage: UNK UNK, QD
     Dates: start: 202408, end: 202408
  51. BOOSTRIX [Concomitant]
     Active Substance: TETANUS TOXOID, REDUCED DIPHTHERIA TOXOID AND ACELLULAR PERTUSSIS VACCINE ADSORBED, TDAP
     Dosage: UNK UNK, QD
     Route: 064
     Dates: start: 202408, end: 202408
  52. BOOSTRIX [Concomitant]
     Active Substance: TETANUS TOXOID, REDUCED DIPHTHERIA TOXOID AND ACELLULAR PERTUSSIS VACCINE ADSORBED, TDAP
     Dosage: UNK UNK, QD
     Route: 064
     Dates: start: 202408, end: 202408
  53. BOOSTRIX [Concomitant]
     Active Substance: TETANUS TOXOID, REDUCED DIPHTHERIA TOXOID AND ACELLULAR PERTUSSIS VACCINE ADSORBED, TDAP
     Dosage: UNK UNK, QD
     Dates: start: 202408, end: 202408
  54. BOOSTRIX [Concomitant]
     Active Substance: TETANUS TOXOID, REDUCED DIPHTHERIA TOXOID AND ACELLULAR PERTUSSIS VACCINE ADSORBED, TDAP
     Dosage: UNK UNK, QD
     Dates: start: 202408, end: 202408
  55. BOOSTRIX [Concomitant]
     Active Substance: TETANUS TOXOID, REDUCED DIPHTHERIA TOXOID AND ACELLULAR PERTUSSIS VACCINE ADSORBED, TDAP
     Dosage: UNK UNK, QD
     Route: 064
     Dates: start: 202408, end: 202408
  56. BOOSTRIX [Concomitant]
     Active Substance: TETANUS TOXOID, REDUCED DIPHTHERIA TOXOID AND ACELLULAR PERTUSSIS VACCINE ADSORBED, TDAP
     Dosage: UNK UNK, QD
     Route: 064
     Dates: start: 202408, end: 202408

REACTIONS (2)
  - Small for dates baby [Recovered/Resolved]
  - Foetal exposure during pregnancy [Recovered/Resolved]

NARRATIVE: CASE EVENT DATE: 20241001
